FAERS Safety Report 14116057 (Version 1)
Quarter: 2017Q4

REPORT INFORMATION
  Report Type: Spontaneous
  Country: US (occurrence: US)
  Receive Date: 20171023
  Receipt Date: 20171023
  Transmission Date: 20180321
  Serious: Yes (Other)
  Sender: FDA-Public Use
  Company Number: US-PFIZER INC-2017447684

PATIENT
  Age: 67 Year
  Sex: Female

DRUGS (2)
  1. EFFEXOR XR [Suspect]
     Active Substance: VENLAFAXINE HYDROCHLORIDE
     Indication: DEPRESSION
     Dosage: 187.5 MG, UNK
  2. EFFEXOR XR [Suspect]
     Active Substance: VENLAFAXINE HYDROCHLORIDE
     Indication: ANXIETY
     Dosage: 150 MG, UNK

REACTIONS (9)
  - Hypertonic bladder [Unknown]
  - Disturbance in attention [Unknown]
  - Loss of consciousness [Unknown]
  - Drug ineffective [Unknown]
  - Tremor [Unknown]
  - Vision blurred [Unknown]
  - Asthenia [Unknown]
  - Dizziness [Unknown]
  - Decreased interest [Unknown]
